FAERS Safety Report 9820321 (Version 1)
Quarter: 2014Q1

REPORT INFORMATION
  Report Type: Spontaneous
  Country: US (occurrence: None)
  Receive Date: 20140114
  Receipt Date: 20140114
  Transmission Date: 20141002
  Serious: Yes (Other)
  Sender: FDA-Public Use
  Company Number: None

PATIENT
  Age: 41 Year
  Sex: Male
  Weight: 97.07 kg

DRUGS (1)
  1. LEVOFLOXACINE [Suspect]
     Indication: PROSTATITIS
     Route: 048
     Dates: start: 20131216, end: 20131227

REACTIONS (2)
  - Diarrhoea [None]
  - Product substitution issue [None]
